FAERS Safety Report 9861889 (Version 1)
Quarter: 2014Q1

REPORT INFORMATION
  Report Type: Spontaneous
  Country: NL (occurrence: NL)
  Receive Date: 20140203
  Receipt Date: 20140203
  Transmission Date: 20141002
  Serious: Yes (Hospitalization)
  Sender: FDA-Public Use
  Company Number: NL-JNJFOC-20140115170

PATIENT
  Age: 81 Year
  Sex: Female

DRUGS (1)
  1. REMINYL [Suspect]
     Indication: DEMENTIA
     Route: 048
     Dates: start: 20110315, end: 20110330

REACTIONS (1)
  - Acute coronary syndrome [Recovered/Resolved with Sequelae]
